FAERS Safety Report 19570101 (Version 2)
Quarter: 2021Q3

REPORT INFORMATION
  Report Type: Spontaneous
  Country: US (occurrence: US)
  Receive Date: 20210715
  Receipt Date: 20210727
  Transmission Date: 20211014
  Serious: Yes (Other)
  Sender: FDA-Public Use
  Company Number: US-TEVA-2021-US-1931432

PATIENT
  Age: 51 Year
  Sex: Male

DRUGS (9)
  1. MOMETASONE/FORMOTEROL [Concomitant]
     Active Substance: FORMOTEROL\MOMETASONE
     Indication: ASPIRIN-EXACERBATED RESPIRATORY DISEASE
     Dosage: 200 MILLIGRAM DAILY; INHALER TWO PUFFS
     Route: 055
  2. MONTELUKAST [Concomitant]
     Active Substance: MONTELUKAST SODIUM
     Indication: ASPIRIN-EXACERBATED RESPIRATORY DISEASE
     Dosage: 10 MILLIGRAM DAILY;
     Route: 065
  3. IBUPROFEN. [Suspect]
     Active Substance: IBUPROFEN
     Indication: PRODUCT USED FOR UNKNOWN INDICATION
     Route: 065
  4. CETIRIZINE [Suspect]
     Active Substance: CETIRIZINE HYDROCHLORIDE
     Indication: URTICARIA
     Dosage: 40 MILLIGRAM DAILY;
     Route: 065
  5. HYDROXYZINE [Suspect]
     Active Substance: HYDROXYZINE HYDROCHLORIDE
     Indication: URTICARIA
     Dosage: 100 MILLIGRAM DAILY;
     Route: 065
  6. ALBUTEROL. [Concomitant]
     Active Substance: ALBUTEROL
     Indication: ASPIRIN-EXACERBATED RESPIRATORY DISEASE
     Dosage: 2.5MG ONCE EVERY 4 HOURS, NEBULISED
     Route: 065
  7. ALBUTEROL. [Concomitant]
     Active Substance: ALBUTEROL
     Dosage: 90MCG RESCUE
     Route: 055
  8. TRIAMCINOLONE [Concomitant]
     Active Substance: TRIAMCINOLONE
     Indication: ASPIRIN-EXACERBATED RESPIRATORY DISEASE
     Dosage: 110 MICROGRAM DAILY;
     Route: 045
  9. PREDNISONE. [Concomitant]
     Active Substance: PREDNISONE
     Indication: ASPIRIN-EXACERBATED RESPIRATORY DISEASE
     Dosage: 30MG, 3?WEEK TAPERED?DOSE SCHEDULE APPROXIMATELY 12 TIMES PER YEAR
     Route: 048

REACTIONS (2)
  - Therapy non-responder [Unknown]
  - Aspirin-exacerbated respiratory disease [Recovered/Resolved]
